FAERS Safety Report 4807207-X (Version None)
Quarter: 2005Q4

REPORT INFORMATION
  Report Type: 
  Country: None (occurrence: None)
  Receive Date: 20051024
  Receipt Date: 20051013
  Transmission Date: 20060501
  Serious: Yes (Hospitalization)
  Sender: FDA-Public Use
  Company Number: PHRM2005FR02741

PATIENT
  Age: 71 Year
  Sex: Male
  Weight: 60 kg

DRUGS (11)
  1. DEPAKENE [Suspect]
     Indication: CONVULSION
     Dosage: 700 MG, TID
     Route: 048
     Dates: start: 20010101, end: 20050930
  2. SOLU-MEDROL [Suspect]
     Dosage: 50 MG, QD
     Route: 042
     Dates: end: 20050915
  3. LOVENOX [Suspect]
     Dosage: 0.2 ML, QD
     Route: 058
     Dates: start: 20050528, end: 20050923
  4. ESOMEPRAZOLE (INEXIUM) [Suspect]
     Dosage: 20 MG, QD
     Route: 048
     Dates: start: 20050530, end: 20050930
  5. NITRODERM [Suspect]
     Dosage: 1 DF, QD
     Route: 062
     Dates: end: 20050915
  6. CORDARONE [Suspect]
     Indication: ATRIAL FIBRILLATION
     Dosage: 200 MG, QD
     Route: 048
     Dates: start: 20050710, end: 20050914
  7. ROCEPHIN [Suspect]
     Route: 065
     Dates: start: 20050917, end: 20050918
  8. SCOPOLAMINE [Suspect]
     Route: 058
     Dates: start: 20050915, end: 20050915
  9. SCOPOLAMINE [Suspect]
     Route: 058
     Dates: start: 20050918, end: 20050918
  10. CELOCURIN [Suspect]
     Route: 042
     Dates: start: 20050919, end: 20050919
  11. DIPRIVAN [Suspect]
     Route: 042
     Dates: start: 20050919, end: 20050919

REACTIONS (6)
  - BLOOD CREATININE INCREASED [None]
  - CREATININE RENAL CLEARANCE DECREASED [None]
  - HAEMATURIA [None]
  - PROTEINURIA [None]
  - RENAL FAILURE ACUTE [None]
  - URINARY CASTS [None]
